FAERS Safety Report 8977092 (Version 3)
Quarter: 2013Q1

REPORT INFORMATION
  Report Type: Spontaneous
  Country: US (occurrence: US)
  Receive Date: 20121220
  Receipt Date: 20130107
  Transmission Date: 20140127
  Serious: Yes (Hospitalization, Other)
  Sender: FDA-Public Use
  Company Number: US-AMGEN-USASP2012081569

PATIENT
  Age: 50 Year
  Sex: Male

DRUGS (2)
  1. EPOGEN [Suspect]
     Indication: RENAL FAILURE CHRONIC
     Dosage: 14300 UNIT, 3 TIMES/WK
     Dates: start: 2012
  2. OMONTYS [Concomitant]
     Dosage: 15 MG, UNK
     Dates: end: 20121112

REACTIONS (4)
  - Haemoglobin decreased [Unknown]
  - Aplasia pure red cell [Unknown]
  - Rash [Unknown]
  - Bone pain [Unknown]
